FAERS Safety Report 16781928 (Version 2)
Quarter: 2019Q3

REPORT INFORMATION
  Report Type: Spontaneous
  Country: PL (occurrence: PL)
  Receive Date: 20190906
  Receipt Date: 20190910
  Transmission Date: 20191005
  Serious: Yes (Other)
  Sender: FDA-Public Use
  Company Number: PHHY2019PL204187

PATIENT
  Age: 57 Year
  Sex: Female

DRUGS (2)
  1. IMATINIB. [Suspect]
     Active Substance: IMATINIB MESYLATE
     Indication: MALIGNANT MELANOMA
     Dosage: 400 MG, BID
     Route: 065
     Dates: start: 20180123
  2. IMATINIB. [Suspect]
     Active Substance: IMATINIB MESYLATE
     Indication: GENITOURINARY MELANOMA
     Dosage: 300 MG, BID
     Route: 065

REACTIONS (3)
  - Nausea [Unknown]
  - Neutropenia [Unknown]
  - Product use in unapproved indication [Unknown]
